FAERS Safety Report 24569316 (Version 4)
Quarter: 2025Q2

REPORT INFORMATION
  Report Type: Spontaneous
  Country: CA (occurrence: CA)
  Receive Date: 20241031
  Receipt Date: 20250506
  Transmission Date: 20250717
  Serious: Yes (Other)
  Sender: PFIZER
  Company Number: CA-PFIZER INC-202300349551

PATIENT
  Age: 62 Year
  Sex: Female

DRUGS (28)
  1. RUXIENCE [Suspect]
     Active Substance: RITUXIMAB-PVVR
     Indication: Rheumatoid arthritis
     Route: 042
     Dates: start: 20220204, end: 20220218
  2. RUXIENCE [Suspect]
     Active Substance: RITUXIMAB-PVVR
     Route: 042
     Dates: start: 20220819, end: 20220902
  3. RUXIENCE [Suspect]
     Active Substance: RITUXIMAB-PVVR
     Route: 042
     Dates: start: 20230228, end: 20230314
  4. RUXIENCE [Suspect]
     Active Substance: RITUXIMAB-PVVR
     Route: 042
     Dates: start: 20231005
  5. RUXIENCE [Suspect]
     Active Substance: RITUXIMAB-PVVR
     Route: 042
     Dates: start: 20231019
  6. RUXIENCE [Suspect]
     Active Substance: RITUXIMAB-PVVR
     Route: 042
     Dates: start: 20240422
  7. RUXIENCE [Suspect]
     Active Substance: RITUXIMAB-PVVR
     Route: 042
     Dates: start: 20240507
  8. RUXIENCE [Suspect]
     Active Substance: RITUXIMAB-PVVR
     Route: 042
     Dates: start: 20241028
  9. RUXIENCE [Suspect]
     Active Substance: RITUXIMAB-PVVR
     Route: 042
     Dates: start: 20241111
  10. RUXIENCE [Suspect]
     Active Substance: RITUXIMAB-PVVR
     Route: 042
     Dates: start: 20250428
  11. FOLIC ACID [Concomitant]
     Active Substance: FOLIC ACID
  12. CLARITHROMYCIN [Concomitant]
     Active Substance: CLARITHROMYCIN
  13. CALCIUM\VITAMIN D [Concomitant]
     Active Substance: CALCIUM\VITAMIN D
  14. DIPHENHYDRAMINE [Concomitant]
     Active Substance: DIPHENHYDRAMINE
  15. ESTROGEL [Concomitant]
     Active Substance: ESTRADIOL
  16. ESTROGEL [Concomitant]
     Active Substance: ESTRADIOL
  17. EVUSHELD [Concomitant]
     Active Substance: CILGAVIMAB\TIXAGEVIMAB
  18. HYDROXYZINE [Concomitant]
     Active Substance: HYDROXYZINE HYDROCHLORIDE
  19. INVOKANA [Concomitant]
     Active Substance: CANAGLIFLOZIN
  20. JANUVIA [Concomitant]
     Active Substance: SITAGLIPTIN PHOSPHATE
  21. METHOTREXATE [Concomitant]
     Active Substance: METHOTREXATE
  22. METHOTREXATE [Concomitant]
     Active Substance: METHOTREXATE
  23. METFORMIN [Concomitant]
     Active Substance: METFORMIN HYDROCHLORIDE
  24. PANTOPRAZOLE [Concomitant]
     Active Substance: PANTOPRAZOLE
  25. CHLORMEZANONE [Concomitant]
     Active Substance: CHLORMEZANONE
  26. SOLIFENACIN [Concomitant]
     Active Substance: SOLIFENACIN
  27. TYLENOL [Concomitant]
     Active Substance: ACETAMINOPHEN
     Dosage: 1000 MG, DAILY
  28. TYLENOL [Concomitant]
     Active Substance: ACETAMINOPHEN

REACTIONS (13)
  - Osteoarthritis [Not Recovered/Not Resolved]
  - Dystonia [Not Recovered/Not Resolved]
  - Therapeutic response shortened [Unknown]
  - Urinary tract infection [Recovered/Resolved]
  - Back pain [Not Recovered/Not Resolved]
  - Bladder pain [Not Recovered/Not Resolved]
  - Sleep disorder due to general medical condition, insomnia type [Not Recovered/Not Resolved]
  - Cold sweat [Not Recovered/Not Resolved]
  - Chills [Not Recovered/Not Resolved]
  - Condition aggravated [Not Recovered/Not Resolved]
  - Fatigue [Not Recovered/Not Resolved]
  - C-reactive protein increased [Not Recovered/Not Resolved]
  - Pain in extremity [Not Recovered/Not Resolved]

NARRATIVE: CASE EVENT DATE: 20231001
